FAERS Safety Report 6942669-3 (Version None)
Quarter: 2010Q3

REPORT INFORMATION
  Report Type: 
  Country: None (occurrence: None)
  Receive Date: 20100826
  Receipt Date: 20100816
  Transmission Date: 20110219
  Serious: Yes (Other)
  Sender: FDA-Public Use
  Company Number: PHHY2010BR19308

PATIENT
  Age: 77 Year
  Sex: Female
  Weight: 45 kg

DRUGS (8)
  1. LEPONEX [Suspect]
     Indication: AGITATION
     Dosage: 25 MG, QD
     Route: 048
  2. LEPONEX [Suspect]
     Indication: ANXIETY
     Dosage: 25 MG, 0.5 TABLET/DAY
     Route: 048
  3. LEVEMIR [Concomitant]
     Indication: DIABETES MELLITUS
     Dosage: 14 UNITS DAILY
     Route: 058
     Dates: start: 20080101
  4. CAPTOPRIL [Concomitant]
     Indication: HYPERTENSION
     Dosage: 25 MG, BID
     Route: 048
  5. FUROSEMIDE [Concomitant]
     Indication: HYPERTENSION
     Dosage: 40 MG DAILY
  6. AMLODIPINE [Concomitant]
     Indication: HYPERTENSION
     Dosage: 5 MG DAILY
     Route: 048
  7. SUSTRATE [Concomitant]
     Indication: ANGINA PECTORIS
     Dosage: 1 DF, BID
     Route: 048
     Dates: start: 19800101
  8. NORTRIPTYLINE HCL [Concomitant]
     Indication: ANXIETY
     Dosage: 1 TABLET IN THE MORNING
     Route: 048
     Dates: start: 20080101

REACTIONS (4)
  - ABNORMAL BEHAVIOUR [None]
  - DELIRIUM [None]
  - GAIT DISTURBANCE [None]
  - MUSCULAR WEAKNESS [None]
